FAERS Safety Report 10503655 (Version 1)
Quarter: 2014Q4

REPORT INFORMATION
  Report Type: Spontaneous
  Country: US (occurrence: None)
  Receive Date: 20141007
  Receipt Date: 20141007
  Transmission Date: 20150528
  Serious: Yes (Hospitalization)
  Sender: FDA-Public Use
  Company Number: None

PATIENT
  Age: 77 Year
  Sex: Female
  Weight: 47.63 kg

DRUGS (15)
  1. MELOXICAM 15MG [Suspect]
     Active Substance: MELOXICAM
     Indication: DEPRESSION
     Route: 048
     Dates: end: 20140914
  2. LISINOPRIL. [Suspect]
     Active Substance: LISINOPRIL
  3. MELOXICAM 15MG [Suspect]
     Active Substance: MELOXICAM
     Indication: ARTHRITIS
     Route: 048
     Dates: end: 20140914
  4. LEXAPRO [Suspect]
     Active Substance: ESCITALOPRAM OXALATE
  5. CIPROFLAXIN [Suspect]
     Active Substance: CIPROFLOXACIN
  6. REMERON [Suspect]
     Active Substance: MIRTAZAPINE
     Dosage: 15 MG, 30, ONCE DAILY, MOUTH
  7. XALATAN [Concomitant]
     Active Substance: LATANOPROST
  8. APPLE CIDER VINEGAR [Concomitant]
     Active Substance: APPLE CIDER VINEGAR
  9. LEXAPRO [Concomitant]
     Active Substance: ESCITALOPRAM OXALATE
     Dosage: 10-20 MG THROUGH THE YEARS 30 ONCE DAILY MOUTH
     Route: 048
     Dates: start: 2001, end: 20140901
  10. MELOXICAM 15MG [Suspect]
     Active Substance: MELOXICAM
     Indication: HYPERTENSION
     Route: 048
     Dates: end: 20140914
  11. MELOXICAM 15MG [Suspect]
     Active Substance: MELOXICAM
     Indication: URINARY TRACT INFECTION
     Route: 048
     Dates: end: 20140914
  12. CRESTOR [Suspect]
     Active Substance: ROSUVASTATIN CALCIUM
  13. NORVASC [Concomitant]
     Active Substance: AMLODIPINE BESYLATE
  14. MELOXICAM 15MG [Suspect]
     Active Substance: MELOXICAM
     Route: 048
     Dates: end: 20140914
  15. BABY ASPIRIN [Suspect]
     Active Substance: ASPIRIN

REACTIONS (12)
  - Tremor [None]
  - Somnolence [None]
  - Myalgia [None]
  - Feeling abnormal [None]
  - Nausea [None]
  - Migraine [None]
  - Drug withdrawal syndrome [None]
  - Abdominal pain [None]
  - Hyponatraemia [None]
  - Dry mouth [None]
  - Urinary tract infection [None]
  - Hypovolaemia [None]

NARRATIVE: CASE EVENT DATE: 20140819
